FAERS Safety Report 8974121 (Version 1)
Quarter: 2012Q4

REPORT INFORMATION
  Report Type: Spontaneous
  Country: JP (occurrence: None)
  Receive Date: 20121212
  Receipt Date: 20121212
  Transmission Date: 20130627
  Serious: Yes (Other)
  Sender: FDA-Public Use
  Company Number: DSA_61230_2012

PATIENT
  Age: 52 Year
  Sex: Male

DRUGS (3)
  1. FLUROURACIL [Suspect]
     Indication: SQUAMOUS CELL CARCINOMA
     Dosage: (DF Intra-arterial)
     Dates: start: 2009
  2. TAXOTERE [Suspect]
     Indication: SQUAMOUS CELL CARCINOMA
     Dosage: (DF Intra-arterial)
     Dates: start: 2009
  3. CISPLATIN [Suspect]
     Indication: SQUAMOUS CELL CARCINOMA
     Dosage: (DF Intra-arterial)
     Dates: start: 2009

REACTIONS (2)
  - Cerebral infarction [None]
  - Peroneal nerve palsy [None]
